FAERS Safety Report 18743665 (Version 1)
Quarter: 2021Q1

REPORT INFORMATION
  Report Type: Spontaneous
  Country: US (occurrence: US)
  Receive Date: 20210114
  Receipt Date: 20210114
  Transmission Date: 20210419
  Serious: No
  Sender: FDA-Public Use
  Company Number: US-GILEAD-2021-0513045

PATIENT
  Age: 90 Year

DRUGS (3)
  1. OXYGEN. [Concomitant]
     Active Substance: OXYGEN
     Dosage: 3 LPM VIA, WEANED DOWN AT 3:00 AM
     Route: 055
     Dates: start: 20210104
  2. OXYGEN. [Concomitant]
     Active Substance: OXYGEN
     Dosage: 5 LPM VIA
     Route: 055
     Dates: start: 20210104
  3. VEKLURY [Suspect]
     Active Substance: REMDESIVIR
     Indication: PRODUCT USED FOR UNKNOWN INDICATION
     Dosage: UNK, AROUND 5:00 PM
     Route: 065
     Dates: start: 20210104

REACTIONS (2)
  - Erythema [Recovering/Resolving]
  - Tachycardia [Recovering/Resolving]

NARRATIVE: CASE EVENT DATE: 20210104
